FAERS Safety Report 5644093-2 (Version None)
Quarter: 2008Q1

REPORT INFORMATION
  Report Type: 
  Country: None (occurrence: None)
  Receive Date: 20080226
  Receipt Date: 20080204
  Transmission Date: 20080703
  Serious: Yes (Hospitalization)
  Sender: FDA-Public Use
  Company Number: B0508795A

PATIENT
  Age: 38 Year
  Sex: Female
  Weight: 64.8644 kg

DRUGS (2)
  1. LAPATINIB (FORMULATION UNKNOWN) (LAPATINIB) [Suspect]
     Indication: BREAST CANCER METASTATIC
     Dosage: 250 MG/ORAL
     Route: 048
     Dates: start: 20070430
  2. CAPECITABINE (FORMULATION UNKNOWN) (CAPECITABINE) [Suspect]
     Indication: BREAST CANCER METASTATIC
     Dosage: 150 MG/ORAL
     Route: 048
     Dates: start: 20070501

REACTIONS (3)
  - INFECTION [None]
  - PERICARDIAL EFFUSION [None]
  - PLEURAL EFFUSION [None]
